FAERS Safety Report 4758530-9 (Version None)
Quarter: 2005Q3

REPORT INFORMATION
  Report Type: 
  Country: None (occurrence: None)
  Receive Date: 20050829
  Receipt Date: 20050812
  Transmission Date: 20060218
  Serious: Yes (Hospitalization)
  Sender: FDA-Public Use
  Company Number: WAES 0508NOR00009

PATIENT
  Age: 66 Year
  Sex: Female

DRUGS (10)
  1. VIOXX [Suspect]
     Indication: BACK PAIN
     Dates: start: 20030612, end: 20031201
  2. VIOXX [Suspect]
     Indication: PAIN IN EXTREMITY
     Dates: start: 20030612, end: 20031201
  3. ALENDRONATE SODIUM [Concomitant]
  4. ATORVASTATIN CALCIUM [Concomitant]
  5. CALCIUM GLUCONATE [Concomitant]
  6. ESOMEPRAZOLE MAGNESIUM [Concomitant]
  7. ESTRIOL [Concomitant]
  8. IPRATROPIUM BROMIDE [Concomitant]
  9. PAROXETINE HCL [Concomitant]
  10. TRAMADOL HCL [Concomitant]

REACTIONS (5)
  - ACUTE MYOCARDIAL INFARCTION [None]
  - CARDIAC ARREST [None]
  - CARDIAC FAILURE [None]
  - PNEUMONIA [None]
  - VENTRICULAR FIBRILLATION [None]
